FAERS Safety Report 7294866-8 (Version None)
Quarter: 2011Q1

REPORT INFORMATION
  Report Type: 
  Country: None (occurrence: None)
  Receive Date: 20110211
  Receipt Date: 20110211
  Transmission Date: 20110831
  Serious: No
  Sender: FDA-Public Use
  Company Number: None

PATIENT
  Age: 72 Year
  Sex: Female
  Weight: 55.7924 kg

DRUGS (1)
  1. RECLAST [Suspect]
     Indication: OSTEOPOROSIS
     Dosage: 30 MIN. INFUSION
     Dates: start: 20090101

REACTIONS (4)
  - VOMITING [None]
  - BONE PAIN [None]
  - OSTEOMYELITIS [None]
  - PYREXIA [None]
